FAERS Safety Report 23715525 (Version 1)
Quarter: 2024Q2

REPORT INFORMATION
  Report Type: Spontaneous
  Country: GB (occurrence: GB)
  Receive Date: 20240407
  Receipt Date: 20240407
  Transmission Date: 20240715
  Serious: Yes (Other)
  Sender: FDA-Public Use
  Company Number: None

PATIENT
  Age: 84 Year
  Sex: Female

DRUGS (15)
  1. OMEPRAZOLE [Suspect]
     Active Substance: OMEPRAZOLE
     Indication: Gastrointestinal haemorrhage
     Dosage: 40MG EVERY DAY 2 SEPARATED DOSES
  2. OMEPRAZOLE [Suspect]
     Active Substance: OMEPRAZOLE
     Indication: Gastrointestinal haemorrhage
     Dosage: 40MG BD FOR 4/52
  3. MINERAL OIL\PETROLATUM\WAX, EMULSIFYING [Concomitant]
     Active Substance: MINERAL OIL\PETROLATUM\WAX, EMULSIFYING
     Dosage: 3 SEPARATED DOSES
  4. COMIRNATY ORIGINAL/OMICRON BA.4/5 [Concomitant]
     Dosage: 5 MICROGRAMS /?15 MICROGRAMS / 0.3 ML DOSE DISPERSION FOR INJECTION MULTIDOSE VIALS
     Dates: start: 20230522, end: 20230522
  5. SANDO-K [Concomitant]
     Dosage: ACUTE
  6. RIFAXIMIN [Concomitant]
     Active Substance: RIFAXIMIN
     Dosage: 2 SEPARATED DOSES
  7. PREGABALIN [Concomitant]
     Active Substance: PREGABALIN
     Dosage: 3 SEPARATED DOSES
  8. SPIRONOLACTONE [Concomitant]
     Active Substance: SPIRONOLACTONE
     Dosage: STOPPED DUE TO LOW SODIUM; NA NORMAL RESUMED (BILATERAL LEG SWELLING)
  9. CARVEDILOL [Concomitant]
     Active Substance: CARVEDILOL
  10. LACTULOSE [Concomitant]
     Active Substance: LACTULOSE
     Dosage: 3.1 - 3.7G / 5 ML 4 SEPARATED DOSES
  11. FERROUS SULFATE [Concomitant]
     Active Substance: FERROUS SULFATE
     Dosage: NO LONGER TAKING
  12. THIAMINE [Concomitant]
     Active Substance: THIAMINE
     Dosage: 3 SEPARATED DOSES
  13. FAMOTIDINE [Concomitant]
     Active Substance: FAMOTIDINE
     Indication: Gastrointestinal haemorrhage
     Dosage: FOR 4/52 THEN GP REVIEW TO STEP DOWN. SWITCHED FROM OMEPRAZOLE 2 SEPARATED DOSES
  14. FUROSEMIDE [Concomitant]
     Active Substance: FUROSEMIDE
     Dosage: ONE TO BE TAKEN ALTERNATE MORNING, CHEMIST SAY ONCE DAILY. SUSPENDED BY OGS LOW SODIUM.
  15. CALAMINE [Concomitant]
     Active Substance: CALAMINE\FERRIC OXIDE RED\ZINC OXIDE
     Dosage: 2 SEPARATED DOSES
     Route: 061

REACTIONS (1)
  - Femoral neck fracture [Unknown]
